FAERS Safety Report 23633701 (Version 1)
Quarter: 2024Q1

REPORT INFORMATION
  Report Type: Spontaneous
  Country: CN (occurrence: CN)
  Receive Date: 20240314
  Receipt Date: 20240314
  Transmission Date: 20240410
  Serious: Yes (Other)
  Sender: FDA-Public Use
  Company Number: CN-ABBVIE-5675819

PATIENT
  Sex: Male

DRUGS (1)
  1. CYCLOSPORINE [Suspect]
     Active Substance: CYCLOSPORINE
     Indication: Maternal exposure timing unspecified
     Route: 064

REACTIONS (4)
  - Meningitis [Recovering/Resolving]
  - Neonatal lupus erythematosus [Recovering/Resolving]
  - Corynebacterium sepsis [Recovering/Resolving]
  - Foetal exposure during pregnancy [Unknown]
